FAERS Safety Report 4868754-8 (Version None)
Quarter: 2005Q4

REPORT INFORMATION
  Report Type: 
  Country: None (occurrence: None)
  Receive Date: 20051223
  Receipt Date: 20051214
  Transmission Date: 20060501
  Serious: Yes (Death, Life-Threatening)
  Sender: FDA-Public Use
  Company Number: 2005JP002312

PATIENT
  Age: 80 Year
  Sex: Female
  Weight: 46.4 kg

DRUGS (9)
  1. FUNGUARD (MICAFUNGIN) INJECTION [Suspect]
     Dosage: 75 MG, UID/QD, IV DRIP
     Route: 041
     Dates: start: 20050805, end: 20050810
  2. FUNGUARD (MICAFUNGIN) INJECTION [Suspect]
     Dosage: 75 MG, UID/QD, IV DRIP
     Route: 041
     Dates: start: 20050823, end: 20050823
  3. CYLOCIDE (CYTARABINE) INJECTION [Suspect]
     Dosage: 28 MG, /D, IV NOS
     Route: 042
     Dates: start: 20050805, end: 20050811
  4. REMINARON (GABEXATE MESILATE) [Suspect]
  5. LASIX [Suspect]
  6. VFEND (VORICONAZOLE) INJECTION [Concomitant]
  7. AZACTAM /SWE/ (AZTREONAM) INJECTION [Concomitant]
  8. PASIL (PAZUFLOXACIN MESILATE) INJECTION [Concomitant]
  9. GRAN (FILGRASTIM) INJECTION [Concomitant]

REACTIONS (2)
  - BLOOD BILIRUBIN INCREASED [None]
  - PNEUMONIA [None]
